FAERS Safety Report 6881970-9 (Version None)
Quarter: 2010Q3

REPORT INFORMATION
  Report Type: 
  Country: None (occurrence: None)
  Receive Date: 20100727
  Receipt Date: 20090716
  Transmission Date: 20110219
  Serious: No
  Sender: FDA-Public Use
  Company Number: US-MYLANLABS-2009S1010633

PATIENT
  Age: 56 Year
  Sex: Male

DRUGS (11)
  1. BUSPIRONE HCL [Suspect]
     Indication: ANXIETY
     Route: 048
  2. BUSPIRONE HCL [Suspect]
     Route: 048
  3. LISINOPRIL [Concomitant]
     Dosage: 20MG/12.5MG
     Route: 048
  4. METOPROLOL TARTRATE [Concomitant]
     Dosage: 2X
     Route: 048
  5. PRAVASTATIN [Concomitant]
     Route: 048
  6. XANAX [Concomitant]
     Route: 048
  7. ASPIRIN [Concomitant]
     Route: 048
  8. CENTRUM [Concomitant]
  9. LOVAZA [Concomitant]
  10. OMEPRAZOLE [Concomitant]
  11. BENADRYL [Concomitant]

REACTIONS (3)
  - ANXIETY [None]
  - DIZZINESS [None]
  - DRUG INEFFECTIVE [None]
